FAERS Safety Report 17901278 (Version 1)
Quarter: 2020Q2

REPORT INFORMATION
  Report Type: Spontaneous
  Country: US (occurrence: US)
  Receive Date: 20200616
  Receipt Date: 20200616
  Transmission Date: 20200714
  Serious: Yes (Life-Threatening)
  Sender: FDA-Public Use
  Company Number: None

PATIENT
  Age: 48 Year
  Sex: Male
  Weight: 90 kg

DRUGS (1)
  1. OLMESARTAN MEDOXOMIL, AMLODIPINE, AND HYDROCHLOROTHIAZIDE TABLETS. [Suspect]
     Active Substance: AMLODIPINE BESYLATE\HYDROCHLOROTHIAZIDE\OLMESARTAN MEDOXOMIL
     Indication: HYPERTENSION
     Route: 048

REACTIONS (2)
  - Nausea [None]
  - Abdominal pain upper [None]

NARRATIVE: CASE EVENT DATE: 20130101
